FAERS Safety Report 20824096 (Version 2)
Quarter: 2022Q3

REPORT INFORMATION
  Report Type: Spontaneous
  Country: CA (occurrence: CA)
  Receive Date: 20220513
  Receipt Date: 20220803
  Transmission Date: 20221027
  Serious: Yes (Hospitalization, Other)
  Sender: FDA-Public Use
  Company Number: CA-SA-SAC20220510000538

PATIENT
  Age: 42 Year
  Sex: Male

DRUGS (3)
  1. FABRAZYME [Suspect]
     Active Substance: AGALSIDASE BETA
     Indication: Diarrhoea
     Dosage: 1 MG/KG, QOW
     Route: 041
     Dates: start: 20190806
  2. FABRAZYME [Suspect]
     Active Substance: AGALSIDASE BETA
     Indication: Pain
  3. REPLAGAL [Concomitant]
     Active Substance: AGALSIDASE ALFA
     Dosage: UNK UNK, QOW
     Dates: start: 20010514, end: 20190723

REACTIONS (3)
  - Pneumothorax [Recovering/Resolving]
  - Dyspnoea [Recovering/Resolving]
  - Product use in unapproved indication [Unknown]

NARRATIVE: CASE EVENT DATE: 20190806
